FAERS Safety Report 6543406-7 (Version None)
Quarter: 2010Q1

REPORT INFORMATION
  Report Type: 
  Country: None (occurrence: None)
  Receive Date: 20100120
  Receipt Date: 20100108
  Transmission Date: 20100710
  Serious: Yes (Life-Threatening, Hospitalization, Disabling, Other)
  Sender: FDA-Public Use
  Company Number: JP-PFIZER INC-2009238606

PATIENT
  Age: 78 Year
  Sex: Male
  Weight: 47 kg

DRUGS (12)
  1. SUNITINIB MALATE [Suspect]
     Indication: RENAL CELL CARCINOMA
     Dosage: 12.5 MG, 1X/DAY
     Route: 048
     Dates: start: 20090703, end: 20090707
  2. OXYCONTIN [Suspect]
     Indication: RENAL CELL CARCINOMA
     Dosage: 10 MG, 2X/DAY
     Route: 048
     Dates: start: 20090703, end: 20090707
  3. MOBIC [Concomitant]
     Indication: RENAL CELL CARCINOMA
     Dosage: 10 MG, 1X/DAY
     Route: 048
     Dates: start: 20090703, end: 20090707
  4. ALLOPURINOL [Concomitant]
     Dosage: UNK
     Route: 048
     Dates: end: 20090707
  5. TENORMIN [Concomitant]
     Dosage: UNK
     Route: 048
     Dates: end: 20090707
  6. AMLODIPINE [Concomitant]
     Dosage: UNK
     Route: 048
     Dates: end: 20090707
  7. ASPIRIN [Concomitant]
     Dosage: UNK
     Route: 048
     Dates: end: 20090707
  8. PANTOSIN [Concomitant]
     Dosage: UNK
     Route: 048
     Dates: start: 20090703, end: 20090707
  9. MAGNESIUM OXIDE [Concomitant]
     Dosage: UNK
     Route: 048
     Dates: start: 20090703, end: 20090707
  10. NOVAMIN [Concomitant]
     Dosage: UNK
     Route: 048
     Dates: start: 20090703, end: 20090707
  11. PRIMPERAN TAB [Concomitant]
     Dosage: UNK
     Route: 042
     Dates: start: 20090706, end: 20090708
  12. INTERFERON ALFA [Concomitant]
     Dosage: UNK
     Dates: start: 20080707, end: 20090628

REACTIONS (6)
  - ALTERED STATE OF CONSCIOUSNESS [None]
  - DIPLEGIA [None]
  - HYPONATRAEMIA [None]
  - LYMPHOCYTE COUNT DECREASED [None]
  - PNEUMONIA [None]
  - RESPIRATORY ARREST [None]
